FAERS Safety Report 9101996 (Version 1)
Quarter: 2013Q1

REPORT INFORMATION
  Report Type: Report from Study
  Country: DE (occurrence: DE)
  Receive Date: 20130218
  Receipt Date: 20130218
  Transmission Date: 20140127
  Serious: Yes (Hospitalization)
  Sender: FDA-Public Use
  Company Number: DE-ASTRAZENECA-2013SE03153

PATIENT
  Age: 27545 Day
  Sex: Male

DRUGS (9)
  1. AZD6140 [Suspect]
     Indication: CORONARY ARTERY DISEASE
     Route: 048
     Dates: start: 20111129
  2. SIMVASTATIN [Concomitant]
     Indication: HYPERCHOLESTEROLAEMIA
     Route: 048
     Dates: start: 20120307
  3. NEPHROTRANS [Concomitant]
     Indication: PROPHYLAXIS
     Route: 048
     Dates: start: 20120531
  4. RAMIPRIL [Concomitant]
     Indication: HYPERTENSION
     Route: 048
  5. VERASPIRON [Concomitant]
     Indication: RENAL FAILURE
     Route: 048
  6. ALLOPURINOL [Concomitant]
     Indication: HYPERURICAEMIA
     Route: 048
     Dates: start: 20120531
  7. MAGNESIUM [Concomitant]
     Indication: MUSCULOSKELETAL PAIN
     Route: 048
  8. BISOHEXAL [Concomitant]
     Indication: HYPERTENSION
     Route: 048
  9. ASA [Concomitant]
     Route: 048

REACTIONS (1)
  - Cardiomyopathy [Recovered/Resolved]
